FAERS Safety Report 21714776 (Version 1)
Quarter: 2022Q4

REPORT INFORMATION
  Report Type: Spontaneous
  Country: US (occurrence: None)
  Receive Date: 20221211
  Receipt Date: 20221211
  Transmission Date: 20230113
  Serious: Yes (unspecified)
  Sender: FDA-Public Use
  Company Number: None

PATIENT
  Age: 40 Year
  Sex: Female
  Weight: 67.5 kg

DRUGS (1)
  1. EQUATE IBUPROFEN [Suspect]
     Active Substance: IBUPROFEN
     Indication: Headache
     Route: 048

REACTIONS (5)
  - Pruritus [None]
  - Swelling [None]
  - Erythema [None]
  - Swollen tongue [None]
  - Speech disorder [None]

NARRATIVE: CASE EVENT DATE: 20221204
